FAERS Safety Report 25933252 (Version 1)
Quarter: 2025Q4

REPORT INFORMATION
  Report Type: Report from Study
  Country: US (occurrence: US)
  Receive Date: 20251017
  Receipt Date: 20251017
  Transmission Date: 20260117
  Serious: Yes (Hospitalization)
  Sender: AMNEAL
  Company Number: US-AMNEAL PHARMACEUTICALS-2025-AMRX-03961

PATIENT

DRUGS (7)
  1. CARBIDOPA\LEVODOPA [Suspect]
     Active Substance: CARBIDOPA\LEVODOPA
     Indication: Parkinsonism
     Dosage: 23.75-95 MG, 3 CAPSULES AT 7AM AND 11AM, 4 CAPSULES AT 3PM AND 7PM
     Route: 048
  2. CARBIDOPA\LEVODOPA [Suspect]
     Active Substance: CARBIDOPA\LEVODOPA
     Dosage: 23.75-95 MG, 1 CAPSULE 4 TIMES A DAY AT 8AM, NOON, 4PM, AND 7-8PM
     Route: 048
     Dates: start: 20220315
  3. CARBIDOPA\LEVODOPA [Suspect]
     Active Substance: CARBIDOPA\LEVODOPA
     Dosage: 23.75-95 MG, 2 CAPSULES AT 8AM, AND 1 CAPSULE AT NOON 4PM AND 7-8PM
     Route: 048
  4. CARBIDOPA\LEVODOPA [Suspect]
     Active Substance: CARBIDOPA\LEVODOPA
     Dosage: 23.75-95MG 1 CAPSULE FOUR TIMES A DAY
     Route: 048
     Dates: start: 20230123
  5. CARBIDOPA\LEVODOPA [Suspect]
     Active Substance: CARBIDOPA\LEVODOPA
     Dosage: 23.75-95MG, 2 CAPSULE FOUR TIMES A DAY
     Route: 048
     Dates: start: 20240723
  6. CARBIDOPA\LEVODOPA [Suspect]
     Active Substance: CARBIDOPA\LEVODOPA
     Dosage: 23.75-95MG, 1 CAPSULE FOUR TIMES A DAY
     Route: 048
  7. CARBIDOPA\LEVODOPA [Suspect]
     Active Substance: CARBIDOPA\LEVODOPA
     Dosage: 23.75-95MG, 2 CAPSULE FOUR TIMES A DAY
     Route: 048
     Dates: start: 20250313

REACTIONS (2)
  - Spinal pain [Unknown]
  - Fall [Unknown]

NARRATIVE: CASE EVENT DATE: 20251001
